FAERS Safety Report 24465875 (Version 1)
Quarter: 2024Q4

REPORT INFORMATION
  Report Type: Report from Study
  Country: US (occurrence: US)
  Receive Date: 20241018
  Receipt Date: 20241018
  Transmission Date: 20250115
  Serious: No
  Sender: ROCHE
  Company Number: US-ROCHE-3527620

PATIENT
  Age: 40 Year
  Sex: Female

DRUGS (7)
  1. XOLAIR [Suspect]
     Active Substance: OMALIZUMAB
     Indication: Idiopathic urticaria
     Dosage: 150 MG IN 1 ML PRE-FILLED SYRINGE INJECT 2 SYRINGES EVERY 28 DAYS
     Route: 058
     Dates: start: 20240228
  2. XOLAIR [Suspect]
     Active Substance: OMALIZUMAB
  3. HYDROXYZINE HYDROCHLORIDE [Concomitant]
     Active Substance: HYDROXYZINE HYDROCHLORIDE
     Dosage: 30 TABLETS, 1 TABLET AT BED TIME FOR 1 MONTH
     Route: 048
     Dates: start: 20240228
  4. EPIPEN [Concomitant]
     Active Substance: EPINEPHRINE
     Dosage: 0.3 MG IN 0.3 ML AUTO INJECTOR INJECT INTO THIGH? FREQUENCY TEXT:1 EACH
     Dates: start: 20240228
  5. ESCITALOPRAM OXALATE [Concomitant]
     Active Substance: ESCITALOPRAM OXALATE
     Dosage: 45 TABLETS, 1/2 TABLET
     Route: 048
     Dates: start: 20231231
  6. OMEPRAZOLE [Concomitant]
     Active Substance: OMEPRAZOLE
     Dosage: 90 EACH
     Route: 048
     Dates: start: 20231231
  7. UBRELVY [Concomitant]
     Active Substance: UBROGEPANT
     Route: 048
     Dates: start: 20240116

REACTIONS (1)
  - Rash [Unknown]
